FAERS Safety Report 23941813 (Version 3)
Quarter: 2025Q2

REPORT INFORMATION
  Report Type: Spontaneous
  Country: US (occurrence: US)
  Receive Date: 20240605
  Receipt Date: 20250504
  Transmission Date: 20250716
  Serious: Yes (Disabling, Other)
  Sender: SANOFI AVENTIS
  Company Number: US-SA-SAC20240603000818

PATIENT
  Age: 59 Year
  Sex: Female

DRUGS (3)
  1. KEVZARA [Suspect]
     Active Substance: SARILUMAB
     Indication: Rheumatoid arthritis
     Dosage: 150 MG, QOW
     Route: 058
     Dates: start: 20240420, end: 2024
  2. KEVZARA [Suspect]
     Active Substance: SARILUMAB
     Dosage: 150 MG, QOW
     Route: 058
     Dates: start: 2024
  3. ORENCIA [Concomitant]
     Active Substance: ABATACEPT

REACTIONS (10)
  - Rheumatoid arthritis [Not Recovered/Not Resolved]
  - Pain [Not Recovered/Not Resolved]
  - Loss of personal independence in daily activities [Not Recovered/Not Resolved]
  - Impaired driving ability [Not Recovered/Not Resolved]
  - Inflammation [Not Recovered/Not Resolved]
  - Condition aggravated [Not Recovered/Not Resolved]
  - Product dose omission issue [Not Recovered/Not Resolved]
  - Fibromyalgia [Not Recovered/Not Resolved]
  - Contusion [Unknown]
  - Oral surgery [Unknown]

NARRATIVE: CASE EVENT DATE: 20240101
